FAERS Safety Report 7991562-6 (Version None)
Quarter: 2011Q4

REPORT INFORMATION
  Report Type: 
  Country: None (occurrence: None)
  Receive Date: 20111219
  Receipt Date: 20111214
  Transmission Date: 20120403
  Serious: Yes (Other)
  Sender: FDA-Public Use
  Company Number: BR-PFIZER INC-2011204051

PATIENT
  Age: 12 Year
  Sex: Male
  Weight: 37 kg

DRUGS (2)
  1. GENOTROPIN [Suspect]
     Dosage: UNK
     Route: 058
     Dates: end: 20111212
  2. GENOTROPIN [Suspect]
     Indication: GROWTH HORMONE DEFICIENCY
     Dosage: 1.2 MG, 1X/DAY, 6INJECTIONS/WEEK
     Route: 058
     Dates: start: 20110708, end: 20110913

REACTIONS (4)
  - LIVER DISORDER [None]
  - ABDOMINAL PAIN [None]
  - DRUG INEFFECTIVE [None]
  - VOMITING [None]
